FAERS Safety Report 12829842 (Version 2)
Quarter: 2020Q2

REPORT INFORMATION
  Report Type: Report from Study
  Country: US (occurrence: US)
  Receive Date: 20161007
  Receipt Date: 20200417
  Transmission Date: 20200713
  Serious: Yes (Other)
  Sender: FDA-Public Use
  Company Number: US-SA-2016SA119188

PATIENT
  Age: 62 Year
  Sex: Male
  Weight: 88.45 kg

DRUGS (1)
  1. TERIFLUNOMIDE. [Suspect]
     Active Substance: TERIFLUNOMIDE
     Indication: MULTIPLE SCLEROSIS
     Dosage: 14 MG, QD
     Route: 048
     Dates: start: 201510

REACTIONS (3)
  - White blood cell count decreased [Unknown]
  - HIV infection [Not Recovered/Not Resolved]
  - Liver function test increased [Unknown]

NARRATIVE: CASE EVENT DATE: 201606
